FAERS Safety Report 4884079-9 (Version None)
Quarter: 2005Q4

REPORT INFORMATION
  Report Type: 
  Country: None (occurrence: None)
  Receive Date: 20051201
  Receipt Date: 20050907
  Transmission Date: 20060501
  Serious: No
  Sender: FDA-Public Use
  Company Number: 2005PV001881

PATIENT
  Age: 70 Year
  Sex: Female
  Weight: 103.4201 kg

DRUGS (4)
  1. BYETTA [Suspect]
     Indication: DIABETES MELLITUS NON-INSULIN-DEPENDENT
     Dosage: 10 MCG; BID; SC
     Route: 058
     Dates: start: 20050705
  2. NOVOLOG [Concomitant]
  3. NOVOLOG [Concomitant]
  4. LANTUS [Concomitant]

REACTIONS (7)
  - ABDOMINAL DISTENSION [None]
  - CONFUSIONAL STATE [None]
  - FEELING COLD [None]
  - FEELING JITTERY [None]
  - HYPOGLYCAEMIA [None]
  - MENTAL IMPAIRMENT [None]
  - NAUSEA [None]
